FAERS Safety Report 5963397-7 (Version None)
Quarter: 2008Q4

REPORT INFORMATION
  Report Type: 
  Country: None (occurrence: None)
  Receive Date: 20081124
  Receipt Date: 20081117
  Transmission Date: 20090506
  Serious: Yes (Other)
  Sender: FDA-Public Use
  Company Number: B0547525A

PATIENT
  Age: 49 Year
  Sex: Male

DRUGS (5)
  1. AVODART [Suspect]
     Indication: DRUG USE FOR UNKNOWN INDICATION
     Dosage: .5MG PER DAY
     Route: 048
     Dates: start: 20081022, end: 20081028
  2. OMNIC [Concomitant]
     Indication: DRUG USE FOR UNKNOWN INDICATION
     Dosage: .4MG PER DAY
     Route: 048
     Dates: start: 20060601
  3. FENOBARBITAL [Concomitant]
     Indication: DRUG USE FOR UNKNOWN INDICATION
     Dosage: 100MG PER DAY
     Route: 048
     Dates: start: 19980101
  4. DEPAKENE [Concomitant]
     Indication: DRUG USE FOR UNKNOWN INDICATION
     Dosage: 500MG TWICE PER DAY
     Route: 048
     Dates: start: 19980101
  5. CARBAMAZEPINE [Concomitant]
     Indication: DRUG USE FOR UNKNOWN INDICATION
     Dosage: 400MG TWICE PER DAY
     Route: 048
     Dates: start: 19980101

REACTIONS (2)
  - DYSKINESIA [None]
  - EPILEPSY [None]
